FAERS Safety Report 18005562 (Version 1)
Quarter: 2020Q3

REPORT INFORMATION
  Report Type: Spontaneous
  Country: US (occurrence: US)
  Receive Date: 20200709
  Receipt Date: 20200709
  Transmission Date: 20201103
  Serious: No
  Sender: FDA-Public Use
  Company Number: None

PATIENT
  Age: 83 Year
  Sex: Male
  Weight: 87.09 kg

DRUGS (1)
  1. TIMOLOL MALEATE STERILE OPHTHALMIC SOLUTION USP 0.5% [Suspect]
     Active Substance: TIMOLOL MALEATE
     Indication: GLAUCOMA
     Dosage: ?          OTHER STRENGTH:0.5%;QUANTITY:15 ML MILLILITRE(S);OTHER ROUTE:IN THE EYE?
     Dates: start: 20200625, end: 20200629

REACTIONS (5)
  - Vision blurred [None]
  - Eye irritation [None]
  - Dry eye [None]
  - Product substitution issue [None]
  - Erythema of eyelid [None]

NARRATIVE: CASE EVENT DATE: 20200629
